APPROVED DRUG PRODUCT: PHENTERMINE HYDROCHLORIDE
Active Ingredient: PHENTERMINE HYDROCHLORIDE
Strength: 15MG
Dosage Form/Route: CAPSULE;ORAL
Application: A090591 | Product #001
Applicant: BARR LABORATORIES INC
Approved: Mar 18, 2010 | RLD: No | RS: No | Type: DISCN